FAERS Safety Report 7694264-9 (Version None)
Quarter: 2011Q3

REPORT INFORMATION
  Report Type: 
  Country: None (occurrence: None)
  Receive Date: 20110819
  Receipt Date: 20110809
  Transmission Date: 20111222
  Serious: Yes (Hospitalization)
  Sender: FDA-Public Use
  Company Number: FR-GLAXOSMITHKLINE-B0727990A

PATIENT
  Sex: Female

DRUGS (6)
  1. CIPROFLOXACIN [Suspect]
     Indication: PYREXIA
     Route: 050
     Dates: start: 20110605, end: 20110609
  2. ROCEPHIN [Suspect]
     Indication: PYREXIA
     Dosage: 1G PER DAY
     Route: 042
     Dates: start: 20110605, end: 20110613
  3. ATACAND [Suspect]
     Indication: HYPERTENSION
     Dosage: 4MG TWICE PER DAY
     Route: 048
     Dates: start: 20110603
  4. LASIX [Suspect]
     Indication: HYPERTENSION
     Dosage: 20MG PER DAY
     Route: 048
     Dates: start: 20110603, end: 20110607
  5. VALACYCLOVIR HYDROCHLORIDE [Suspect]
     Indication: GENITAL HERPES
     Dosage: 500MG PER DAY
     Route: 048
     Dates: start: 20110604
  6. PANTOPRAZOLE SODIUM [Suspect]
     Indication: GASTRIC ULCER
     Dosage: 40MG PER DAY
     Route: 048
     Dates: start: 20110603

REACTIONS (2)
  - HALLUCINATION, VISUAL [None]
  - CONFUSIONAL STATE [None]
